FAERS Safety Report 8326720-4 (Version None)
Quarter: 2012Q2

REPORT INFORMATION
  Report Type: 
  Country: None (occurrence: None)
  Receive Date: 20120501
  Receipt Date: 20120424
  Transmission Date: 20120825
  Serious: Yes (Other)
  Sender: FDA-Public Use
  Company Number: JP-ABBOTT-12P-087-0928972-00

PATIENT

DRUGS (1)
  1. CLARITHROMYCIN [Suspect]
     Indication: OTITIS MEDIA
     Route: 048

REACTIONS (1)
  - PANCYTOPENIA [None]
